FAERS Safety Report 12984483 (Version 2)
Quarter: 2016Q4

REPORT INFORMATION
  Report Type: Spontaneous
  Country: CA (occurrence: CA)
  Receive Date: 20161129
  Receipt Date: 20161208
  Transmission Date: 20170207
  Serious: Yes (Hospitalization, Other)
  Sender: FDA-Public Use
  Company Number: CA-PFIZER INC-2015058709

PATIENT
  Age: 65 Year
  Sex: Female

DRUGS (8)
  1. METHOTREXATE SODIUM. [Suspect]
     Active Substance: METHOTREXATE SODIUM
     Indication: RHEUMATOID ARTHRITIS
     Dosage: 10 MG, UNK
     Route: 048
     Dates: start: 1990
  2. METHOTREXATE SODIUM. [Suspect]
     Active Substance: METHOTREXATE SODIUM
     Dosage: 15 MG, WEEKLY
     Route: 048
  3. GOLD [Suspect]
     Active Substance: GOLD
     Indication: RHEUMATOID ARTHRITIS
     Dosage: UNK
  4. PLAQUENIL [Suspect]
     Active Substance: HYDROXYCHLOROQUINE SULFATE
     Indication: RHEUMATOID ARTHRITIS
     Dosage: 400 MG, UNK
     Dates: start: 1995, end: 2000
  5. PREDNISONE. [Concomitant]
     Active Substance: PREDNISONE
     Indication: RHEUMATOID ARTHRITIS
     Dosage: UNK
  6. ARAVA [Suspect]
     Active Substance: LEFLUNOMIDE
     Indication: RHEUMATOID ARTHRITIS
     Dosage: 20 MG, UNK
  7. ACTEMRA [Suspect]
     Active Substance: TOCILIZUMAB
     Indication: RHEUMATOID ARTHRITIS
     Dosage: 250 MG, UNK
     Dates: start: 2011, end: 2011
  8. FOLIC ACID. [Concomitant]
     Active Substance: FOLIC ACID
     Indication: RHEUMATOID ARTHRITIS
     Dosage: UNK

REACTIONS (13)
  - Osteomyelitis [Recovering/Resolving]
  - Gastrointestinal disorder [Unknown]
  - Postoperative wound infection [Not Recovered/Not Resolved]
  - Malaise [Unknown]
  - Pleurisy [Unknown]
  - Red blood cell sedimentation rate increased [Unknown]
  - Eye disorder [Unknown]
  - Fatigue [Unknown]
  - Clostridium difficile infection [Unknown]
  - Diarrhoea [Unknown]
  - Pneumonia [Unknown]
  - Arthralgia [Unknown]
  - C-reactive protein increased [Unknown]

NARRATIVE: CASE EVENT DATE: 2015
